FAERS Safety Report 24072296 (Version 3)
Quarter: 2024Q3

REPORT INFORMATION
  Report Type: Spontaneous
  Country: BR (occurrence: BR)
  Receive Date: 20240710
  Receipt Date: 20240727
  Transmission Date: 20241016
  Serious: Yes (Other)
  Sender: CELLTRION
  Company Number: BR-CELLTRION INC.-2024BR016369

PATIENT

DRUGS (2)
  1. INFLIXIMAB [Suspect]
     Active Substance: INFLIXIMAB
     Indication: Ankylosing spondylitis
     Dosage: 5 AMPOULES OF 100MG EACH, EVERY 8 WEEKS
     Route: 042
     Dates: start: 20221213
  2. INFLIXIMAB [Suspect]
     Active Substance: INFLIXIMAB
     Dosage: 5 AMPOULES OF 100MG EACH, EVERY 8 WEEKS
     Route: 042
     Dates: start: 20240627

REACTIONS (4)
  - Ankylosing spondylitis [Recovered/Resolved]
  - Influenza like illness [Recovered/Resolved]
  - Intentional dose omission [Recovered/Resolved]
  - Therapeutic response shortened [Unknown]

NARRATIVE: CASE EVENT DATE: 20240613
